FAERS Safety Report 6508755-7 (Version None)
Quarter: 2009Q4

REPORT INFORMATION
  Report Type: 
  Country: None (occurrence: None)
  Receive Date: 20091201
  Receipt Date: 20091019
  Transmission Date: 20100525
  Serious: Yes (Hospitalization)
  Sender: FDA-Public Use
  Company Number: 2009-190399-NL

PATIENT
  Age: 34 Year
  Sex: Female
  Weight: 72.6 kg

DRUGS (2)
  1. NUVARING [Suspect]
     Indication: MENSTRUATION IRREGULAR
     Dates: start: 20070209, end: 20070223
  2. METFORMIN (CON.) [Concomitant]

REACTIONS (2)
  - OVARIAN CYST RUPTURED [None]
  - TRANSVERSE SINUS THROMBOSIS [None]
